FAERS Safety Report 9938699 (Version 3)
Quarter: 2014Q2

REPORT INFORMATION
  Report Type: Report from Study
  Country: JP (occurrence: JP)
  Receive Date: 20140303
  Receipt Date: 20140515
  Transmission Date: 20141212
  Serious: Yes (Hospitalization)
  Sender: FDA-Public Use
  Company Number: JP-JNJFOC-20140216115

PATIENT
  Age: 40 Year
  Sex: Male
  Weight: 57 kg

DRUGS (9)
  1. XARELTO [Suspect]
     Indication: ATRIAL FIBRILLATION
     Route: 048
     Dates: start: 20130724, end: 20140126
  2. XARELTO [Suspect]
     Indication: CEREBROVASCULAR ACCIDENT PROPHYLAXIS
     Route: 048
     Dates: start: 20130724, end: 20140126
  3. ADALAT CR [Concomitant]
     Route: 048
  4. TANATRIL [Concomitant]
     Route: 048
  5. MAINTATE [Concomitant]
     Route: 048
  6. TAMBOCOR [Concomitant]
     Route: 048
     Dates: start: 20130806
  7. GLIMEPIRIDE [Concomitant]
     Route: 048
  8. NESINA [Concomitant]
     Route: 048
  9. ALOSITOL [Concomitant]
     Route: 048

REACTIONS (1)
  - Interstitial lung disease [Recovering/Resolving]
